FAERS Safety Report 8118006-8 (Version None)
Quarter: 2012Q1

REPORT INFORMATION
  Report Type: 
  Country: None (occurrence: None)
  Receive Date: 20120202
  Receipt Date: 20120123
  Transmission Date: 20120608
  Serious: Yes (Hospitalization)
  Sender: FDA-Public Use
  Company Number: IT-1186377

PATIENT
  Age: 38 Year
  Sex: Male

DRUGS (2)
  1. DICLOFENAMIDE [Concomitant]
  2. NEVANAC [Suspect]
     Dosage: 3 GTT QD OPHTHALMIC
     Route: 047
     Dates: start: 20110301, end: 20110513

REACTIONS (1)
  - PANCYTOPENIA [None]
